FAERS Safety Report 16986685 (Version 2)
Quarter: 2020Q1

REPORT INFORMATION
  Report Type: Report from Study
  Country: US (occurrence: US)
  Receive Date: 20191101
  Receipt Date: 20200228
  Transmission Date: 20200409
  Serious: Yes (Other)
  Sender: FDA-Public Use
  Company Number: US-EMD SERONO-9125573

PATIENT
  Sex: Male

DRUGS (2)
  1. REBIF [Suspect]
     Active Substance: INTERFERON BETA-1A
     Dosage: PREFILLED SYRINGE
     Route: 058
     Dates: start: 20190830, end: 20200128
  2. REBIF [Suspect]
     Active Substance: INTERFERON BETA-1A
     Indication: MULTIPLE SCLEROSIS
     Route: 058
     Dates: start: 20070210, end: 20090210

REACTIONS (7)
  - Malaise [Unknown]
  - Injection site reaction [Unknown]
  - Ligament disorder [Unknown]
  - Drug intolerance [Unknown]
  - Influenza like illness [Unknown]
  - General physical health deterioration [Unknown]
  - Tendon disorder [Unknown]

NARRATIVE: CASE EVENT DATE: 2019
